FAERS Safety Report 6844440-X (Version None)
Quarter: 2010Q3

REPORT INFORMATION
  Report Type: 
  Country: None (occurrence: None)
  Receive Date: 20100713
  Receipt Date: 20100628
  Transmission Date: 20110219
  Serious: Yes (Other)
  Sender: FDA-Public Use
  Company Number: 014665

PATIENT
  Sex: Female

DRUGS (1)
  1. CIMZIA [Suspect]
     Dosage: (SUBCUTANEOUS)
     Route: 058
     Dates: start: 20100201

REACTIONS (4)
  - ABDOMINAL PAIN [None]
  - INTESTINAL RESECTION [None]
  - PROCTALGIA [None]
  - SMALL INTESTINAL RESECTION [None]
